FAERS Safety Report 20660791 (Version 2)
Quarter: 2022Q2

REPORT INFORMATION
  Report Type: Spontaneous
  Country: US (occurrence: US)
  Receive Date: 20220331
  Receipt Date: 20220525
  Transmission Date: 20220721
  Serious: No
  Sender: FDA-Public Use
  Company Number: US-PFIZER INC-2021728092

PATIENT
  Age: 73 Year
  Sex: Female
  Weight: 85.28 kg

DRUGS (1)
  1. MEDROL [Suspect]
     Active Substance: METHYLPREDNISOLONE
     Indication: Inflammation
     Dosage: UNK

REACTIONS (13)
  - Therapeutic product effect incomplete [Unknown]
  - Muscle spasms [Recovering/Resolving]
  - Vascular injury [Unknown]
  - Contusion [Unknown]
  - Vomiting [Not Recovered/Not Resolved]
  - Dizziness [Unknown]
  - Malaise [Unknown]
  - Pain [Unknown]
  - Fatigue [Unknown]
  - Vomiting [Unknown]
  - Pyrexia [Unknown]
  - Pyrexia [Not Recovered/Not Resolved]
  - Malaise [Unknown]

NARRATIVE: CASE EVENT DATE: 20210301
